FAERS Safety Report 21363934 (Version 3)
Quarter: 2022Q4

REPORT INFORMATION
  Report Type: Spontaneous
  Country: JP (occurrence: JP)
  Receive Date: 20220922
  Receipt Date: 20221028
  Transmission Date: 20230113
  Serious: Yes (Death, Hospitalization, Other)
  Sender: FDA-Public Use
  Company Number: JP-GSKJP-JP2022JPN135849AA

PATIENT

DRUGS (11)
  1. NUCALA [Suspect]
     Active Substance: MEPOLIZUMAB
     Indication: Eosinophilic granulomatosis with polyangiitis
     Dosage: 300 MG, ONCE IN 4WEEKS
     Dates: start: 20210701, end: 20220428
  2. PREDONINE [Suspect]
     Active Substance: PREDNISOLONE
     Indication: Eosinophilic granulomatosis with polyangiitis
     Dosage: 60 MG, 1D
     Route: 048
     Dates: start: 202102
  3. PREDONINE [Suspect]
     Active Substance: PREDNISOLONE
     Indication: Diffuse large B-cell lymphoma
     Dosage: UNK TAPERING
     Route: 048
  4. PREDONINE [Suspect]
     Active Substance: PREDNISOLONE
     Dosage: 5 MG
     Route: 048
     Dates: end: 20220610
  5. MAINTATE (BISOPROLOL FUMARATE) [Concomitant]
     Indication: Cardiac failure
     Dosage: 2.5 MG, 1D
     Route: 048
     Dates: end: 20220610
  6. FEBUXOSTAT [Concomitant]
     Active Substance: FEBUXOSTAT
     Indication: Hyperuricaemia
     Dosage: 10 MG, 1D
     Route: 048
     Dates: end: 20220610
  7. PARIET TABLET [Concomitant]
     Indication: Gastrooesophageal reflux disease
     Dosage: 10 MG, 1D
     Route: 048
     Dates: end: 20220610
  8. MEVALOTIN TABLETS [Concomitant]
     Indication: Dyslipidaemia
     Dosage: 10 MG, 1D
     Route: 048
     Dates: end: 20220610
  9. BONALON TABLET [Concomitant]
     Indication: Osteoporosis
     Dosage: 35 MG, WE
     Route: 048
     Dates: end: 20220610
  10. PROMAC (JAPAN) [Concomitant]
     Dosage: 150 MG, 1D
     Route: 048
     Dates: end: 20220610
  11. FEXOFENADINE HYDROCHLORIDE [Concomitant]
     Active Substance: FEXOFENADINE HYDROCHLORIDE
     Indication: Pruritus
     Dosage: 120 MG, 1D
     Route: 048
     Dates: end: 20220610

REACTIONS (7)
  - Diffuse large B-cell lymphoma [Fatal]
  - Condition aggravated [Fatal]
  - Neck mass [Unknown]
  - Sinusitis fungal [Unknown]
  - Cholelithiasis [Unknown]
  - Renal cyst [Unknown]
  - Lymphadenopathy [Unknown]

NARRATIVE: CASE EVENT DATE: 20220401
